FAERS Safety Report 9769841 (Version 1)
Quarter: 2013Q4

REPORT INFORMATION
  Report Type: Spontaneous
  Country: US (occurrence: US)
  Receive Date: 20131218
  Receipt Date: 20131218
  Transmission Date: 20140711
  Serious: No
  Sender: FDA-Public Use
  Company Number: US-VERTEX PHARMACEUTICALS INC-AE-2011-000646

PATIENT
  Sex: 0

DRUGS (4)
  1. INCIVEK [Suspect]
     Indication: HEPATITIS C
     Dates: start: 20110725
  2. PEGINTRON [Concomitant]
     Indication: HEPATITIS C
     Dates: start: 20110725
  3. RIBAVIRIN [Concomitant]
     Indication: HEPATITIS C
     Dates: start: 20110725
  4. FLAX SEED OIL [Concomitant]
     Indication: LAXATIVE SUPPORTIVE CARE
     Route: 048

REACTIONS (2)
  - Abdominal pain upper [Not Recovered/Not Resolved]
  - Diarrhoea [Not Recovered/Not Resolved]
